FAERS Safety Report 24904401 (Version 1)
Quarter: 2025Q1

REPORT INFORMATION
  Report Type: Report from Study
  Country: ES (occurrence: ES)
  Receive Date: 20250130
  Receipt Date: 20250130
  Transmission Date: 20250409
  Serious: Yes (Hospitalization, Other)
  Sender: TEVA
  Company Number: ES-TEVA-VS-3289597

PATIENT
  Age: 34 Year
  Sex: Female

DRUGS (8)
  1. TERIPARATIDE [Suspect]
     Active Substance: TERIPARATIDE
     Indication: Osteoporosis
     Route: 065
     Dates: start: 202411
  2. GABAPENTIN [Concomitant]
     Active Substance: GABAPENTIN
     Indication: Pain
     Dosage: START DATE: APPROXIMATELY ONE AND A HALF YEARS AGO
     Dates: start: 2023
  3. RIVOTRIL [Concomitant]
     Active Substance: CLONAZEPAM
     Indication: Anxiety
     Dosage: APPROXIMATELY ONE AND A HALF YEARS AGO, 0-0-1
     Dates: start: 2023
  4. TRAMADOL [Concomitant]
     Active Substance: TRAMADOL
     Indication: Pain
     Dosage: APPROXIMATELY ONE AND A HALF YEARS AGO
     Dates: start: 2023
  5. ARCOXIA [Concomitant]
     Active Substance: ETORICOXIB
     Indication: Pain
     Dates: start: 2023
  6. ALPRAZOLAM [Concomitant]
     Active Substance: ALPRAZOLAM
     Indication: Anxiety
     Dosage: APPROXIMATELY ONE AND A HALF YEARS AGO, 0-0-1
     Dates: start: 2023
  7. BUPRENORPHINE [Concomitant]
     Active Substance: BUPRENORPHINE
     Indication: Pain
     Dosage: 35, 1/2 EVERY 72 HOURS, APPROXIMATELY ONE AND A HALF YEARS AGO
     Dates: start: 2023
  8. ACETAMINOPHEN [Concomitant]
     Active Substance: ACETAMINOPHEN
     Indication: Pain
     Dosage: APPROXIMATELY ONE AND A HALF YEARS AGO. 1-1-1
     Dates: start: 2023

REACTIONS (4)
  - Loss of consciousness [Unknown]
  - Hypotension [Not Recovered/Not Resolved]
  - Dizziness [Not Recovered/Not Resolved]
  - Fatigue [Not Recovered/Not Resolved]

NARRATIVE: CASE EVENT DATE: 20241101
